FAERS Safety Report 9150983 (Version 1)
Quarter: 2013Q1

REPORT INFORMATION
  Report Type: Spontaneous
  Country: US (occurrence: US)
  Receive Date: 20130308
  Receipt Date: 20130308
  Transmission Date: 20140127
  Serious: No
  Sender: FDA-Public Use
  Company Number: US-GLAXOSMITHKLINE-A0996838A

PATIENT
  Age: 49 Year
  Sex: Male

DRUGS (2)
  1. OLUX E [Suspect]
     Indication: ECZEMA
     Dosage: 1APP TWICE PER DAY
     Route: 061
     Dates: start: 2011
  2. NO CONCURRENT MEDICATION [Concomitant]

REACTIONS (3)
  - Skin irritation [Not Recovered/Not Resolved]
  - Erythema [Not Recovered/Not Resolved]
  - Skin fissures [Not Recovered/Not Resolved]
